FAERS Safety Report 23994924 (Version 2)
Quarter: 2024Q3

REPORT INFORMATION
  Report Type: Spontaneous
  Country: US (occurrence: US)
  Receive Date: 20240620
  Receipt Date: 20240709
  Transmission Date: 20241017
  Serious: Yes (Death, Hospitalization, Other)
  Sender: PFIZER
  Company Number: US-PFIZER INC-PV202400079353

PATIENT
  Age: 69 Year
  Sex: Male

DRUGS (4)
  1. SOLU-MEDROL [Suspect]
     Active Substance: METHYLPREDNISOLONE SODIUM SUCCINATE
     Indication: Meningoencephalitis viral
     Dosage: UNK,HIGH-DOSE
  2. HUMAN IMMUNOGLOBULIN G [Suspect]
     Active Substance: HUMAN IMMUNOGLOBULIN G
     Indication: Meningoencephalitis viral
     Dosage: UNK
     Route: 042
  3. REMDESIVIR [Suspect]
     Active Substance: REMDESIVIR
     Indication: Meningoencephalitis viral
     Dosage: UNK
  4. RIBAVIRIN [Suspect]
     Active Substance: RIBAVIRIN
     Indication: Meningoencephalitis viral
     Dosage: UNK

REACTIONS (1)
  - Drug ineffective for unapproved indication [Fatal]
